FAERS Safety Report 23430283 (Version 7)
Quarter: 2025Q3

REPORT INFORMATION
  Report Type: Spontaneous
  Country: CA (occurrence: CA)
  Receive Date: 20240123
  Receipt Date: 20250723
  Transmission Date: 20251020
  Serious: Yes (Death, Life-Threatening, Hospitalization, Disabling, Congenital Anomaly, Other)
  Sender: Haleon PLC
  Company Number: CA-002147023-NVSC2024CA009468

PATIENT
  Age: 40 Year
  Sex: Female
  Weight: 96 kg

DRUGS (619)
  1. VOLTAREN [Suspect]
     Active Substance: DICLOFENAC SODIUM
     Indication: Product used for unknown indication
  2. VOLTAREN [Suspect]
     Active Substance: DICLOFENAC SODIUM
  3. VOLTAREN [Suspect]
     Active Substance: DICLOFENAC SODIUM
  4. VOLTAREN [Suspect]
     Active Substance: DICLOFENAC SODIUM
  5. VOLTAREN [Suspect]
     Active Substance: DICLOFENAC SODIUM
     Indication: Product used for unknown indication
  6. VOLTAREN [Suspect]
     Active Substance: DICLOFENAC SODIUM
  7. VOLTAREN [Suspect]
     Active Substance: DICLOFENAC SODIUM
  8. VOLTAREN [Suspect]
     Active Substance: DICLOFENAC SODIUM
  9. ERELZI [Suspect]
     Active Substance: ETANERCEPT-SZZS
     Indication: Rheumatoid arthritis
  10. ERELZI [Suspect]
     Active Substance: ETANERCEPT-SZZS
  11. ERELZI [Suspect]
     Active Substance: ETANERCEPT-SZZS
  12. COSENTYX [Suspect]
     Active Substance: SECUKINUMAB
     Indication: Rheumatoid arthritis
  13. COSENTYX [Suspect]
     Active Substance: SECUKINUMAB
     Indication: Psoriatic arthropathy
  14. ERENUMAB [Suspect]
     Active Substance: ERENUMAB
     Indication: Migraine
  15. ERENUMAB [Suspect]
     Active Substance: ERENUMAB
  16. ERENUMAB [Suspect]
     Active Substance: ERENUMAB
  17. TOPIRAMATE [Suspect]
     Active Substance: TOPIRAMATE
     Indication: Migraine
     Dosage: 3 MG, QD PATIENT ROA: UNKNOWN
  18. TOPIRAMATE [Suspect]
     Active Substance: TOPIRAMATE
     Dosage: 25 MG, QD PATIENT ROA: UNKNOWN
  19. TOPIRAMATE [Suspect]
     Active Substance: TOPIRAMATE
     Dosage: 25 MG, QD PATIENT ROA: UNKNOWN
  20. ALENDRONATE SODIUM [Suspect]
     Active Substance: ALENDRONATE SODIUM
     Indication: Rheumatoid arthritis
  21. ALENDRONATE SODIUM [Suspect]
     Active Substance: ALENDRONATE SODIUM
  22. ALENDRONATE SODIUM [Suspect]
     Active Substance: ALENDRONATE SODIUM
     Route: 050
  23. ALENDRONATE SODIUM [Suspect]
     Active Substance: ALENDRONATE SODIUM
  24. ALENDRONATE SODIUM [Suspect]
     Active Substance: ALENDRONATE SODIUM
     Route: 050
  25. ALENDRONATE SODIUM [Suspect]
     Active Substance: ALENDRONATE SODIUM
     Route: 050
  26. LEFLUNOMIDE [Suspect]
     Active Substance: LEFLUNOMIDE
     Indication: Rheumatoid arthritis
     Dosage: 10 MG, QD PATIENT ROA: UNKNOWN
  27. LEFLUNOMIDE [Suspect]
     Active Substance: LEFLUNOMIDE
     Dosage: 20 MG, QD PATIENT ROA: UNKNOWN
  28. LEFLUNOMIDE [Suspect]
     Active Substance: LEFLUNOMIDE
     Dosage: 10 MG, QD ORAL
  29. LEFLUNOMIDE [Suspect]
     Active Substance: LEFLUNOMIDE
  30. LEFLUNOMIDE [Suspect]
     Active Substance: LEFLUNOMIDE
  31. LEFLUNOMIDE [Suspect]
     Active Substance: LEFLUNOMIDE
     Dosage: 20 MG PATIENT ROA: UNKNOWN
  32. LEFLUNOMIDE [Suspect]
     Active Substance: LEFLUNOMIDE
  33. LEFLUNOMIDE [Suspect]
     Active Substance: LEFLUNOMIDE
  34. LEFLUNOMIDE [Suspect]
     Active Substance: LEFLUNOMIDE
  35. LEFLUNOMIDE [Suspect]
     Active Substance: LEFLUNOMIDE
  36. LEFLUNOMIDE [Suspect]
     Active Substance: LEFLUNOMIDE
  37. LEFLUNOMIDE [Suspect]
     Active Substance: LEFLUNOMIDE
  38. CELECOXIB [Suspect]
     Active Substance: CELECOXIB
     Indication: Product used for unknown indication
     Dosage: 1 DOSAGE FORM, QD
  39. CELECOXIB [Suspect]
     Active Substance: CELECOXIB
     Dosage: 2 DOSAGE FORM, QD
     Route: 050
  40. ADALIMUMAB [Suspect]
     Active Substance: ADALIMUMAB
     Indication: Rheumatoid arthritis
  41. ADALIMUMAB [Suspect]
     Active Substance: ADALIMUMAB
  42. ADALIMUMAB [Suspect]
     Active Substance: ADALIMUMAB
  43. ADALIMUMAB [Suspect]
     Active Substance: ADALIMUMAB
  44. ADALIMUMAB [Suspect]
     Active Substance: ADALIMUMAB
  45. ADALIMUMAB [Suspect]
     Active Substance: ADALIMUMAB
  46. LEFLUNOMIDE [Suspect]
     Active Substance: LEFLUNOMIDE
     Indication: Rheumatoid arthritis
     Dosage: 20 MILLIGRAM, QD
  47. LEFLUNOMIDE [Suspect]
     Active Substance: LEFLUNOMIDE
     Dosage: 10 MILLIGRAM, QD
  48. LEFLUNOMIDE [Suspect]
     Active Substance: LEFLUNOMIDE
     Dosage: 10 MILLIGRAM, QD
  49. LEFLUNOMIDE [Suspect]
     Active Substance: LEFLUNOMIDE
  50. LEFLUNOMIDE [Suspect]
     Active Substance: LEFLUNOMIDE
  51. LEFLUNOMIDE [Suspect]
     Active Substance: LEFLUNOMIDE
  52. LEFLUNOMIDE [Suspect]
     Active Substance: LEFLUNOMIDE
  53. LEFLUNOMIDE [Suspect]
     Active Substance: LEFLUNOMIDE
  54. LEFLUNOMIDE [Suspect]
     Active Substance: LEFLUNOMIDE
     Dosage: 10 MILLIGRAM, QD
  55. OXYCODONE [Suspect]
     Active Substance: OXYCODONE
     Indication: Product used for unknown indication
  56. OXYCODONE [Suspect]
     Active Substance: OXYCODONE
  57. OXYCODONE [Suspect]
     Active Substance: OXYCODONE
  58. AIMOVIG [Suspect]
     Active Substance: ERENUMAB-AOOE
     Indication: Migraine
  59. AIMOVIG [Suspect]
     Active Substance: ERENUMAB-AOOE
  60. AIMOVIG [Suspect]
     Active Substance: ERENUMAB-AOOE
  61. AIMOVIG [Suspect]
     Active Substance: ERENUMAB-AOOE
  62. AIMOVIG [Suspect]
     Active Substance: ERENUMAB-AOOE
  63. AIMOVIG [Suspect]
     Active Substance: ERENUMAB-AOOE
  64. AIMOVIG [Suspect]
     Active Substance: ERENUMAB-AOOE
  65. AIMOVIG [Suspect]
     Active Substance: ERENUMAB-AOOE
  66. AIMOVIG [Suspect]
     Active Substance: ERENUMAB-AOOE
  67. DICLOFENAC SODIUM [Suspect]
     Active Substance: DICLOFENAC SODIUM
     Indication: Product used for unknown indication
  68. DICLOFENAC SODIUM [Suspect]
     Active Substance: DICLOFENAC SODIUM
  69. DICLOFENAC SODIUM [Suspect]
     Active Substance: DICLOFENAC SODIUM
  70. Desogestrel; Ethinylestradiol [Concomitant]
     Indication: Product used for unknown indication
  71. CANDESARTAN [Suspect]
     Active Substance: CANDESARTAN
     Indication: Migraine
     Route: 048
  72. CANDESARTAN [Suspect]
     Active Substance: CANDESARTAN
     Route: 048
  73. CANDESARTAN [Suspect]
     Active Substance: CANDESARTAN
     Route: 050
  74. CANDESARTAN [Suspect]
     Active Substance: CANDESARTAN
  75. CANDESARTAN [Suspect]
     Active Substance: CANDESARTAN
     Route: 050
  76. CANDESARTAN [Suspect]
     Active Substance: CANDESARTAN
     Route: 048
  77. CANDESARTAN [Suspect]
     Active Substance: CANDESARTAN
     Route: 050
  78. CANDESARTAN [Suspect]
     Active Substance: CANDESARTAN
  79. CANDESARTAN [Suspect]
     Active Substance: CANDESARTAN
     Route: 050
  80. CANDESARTAN [Suspect]
     Active Substance: CANDESARTAN
  81. CANDESARTAN [Suspect]
     Active Substance: CANDESARTAN
  82. CANDESARTAN [Suspect]
     Active Substance: CANDESARTAN
  83. CANDESARTAN [Suspect]
     Active Substance: CANDESARTAN
  84. CANDESARTAN [Suspect]
     Active Substance: CANDESARTAN
  85. COSENTYX [Suspect]
     Active Substance: SECUKINUMAB
     Indication: Psoriatic arthropathy
  86. COSENTYX [Suspect]
     Active Substance: SECUKINUMAB
     Indication: Rheumatoid arthritis
  87. COSENTYX [Suspect]
     Active Substance: SECUKINUMAB
  88. COSENTYX [Suspect]
     Active Substance: SECUKINUMAB
  89. COSENTYX [Suspect]
     Active Substance: SECUKINUMAB
  90. COSENTYX [Suspect]
     Active Substance: SECUKINUMAB
  91. COSENTYX [Suspect]
     Active Substance: SECUKINUMAB
  92. COSENTYX [Suspect]
     Active Substance: SECUKINUMAB
  93. COSENTYX [Suspect]
     Active Substance: SECUKINUMAB
  94. DICLOFENAC SODIUM [Suspect]
     Active Substance: DICLOFENAC SODIUM
     Indication: Product used for unknown indication
  95. DICLOFENAC SODIUM [Suspect]
     Active Substance: DICLOFENAC SODIUM
  96. DICLOFENAC SODIUM [Suspect]
     Active Substance: DICLOFENAC SODIUM
     Route: 050
  97. DICLOFENAC SODIUM [Suspect]
     Active Substance: DICLOFENAC SODIUM
  98. DICLOFENAC SODIUM [Suspect]
     Active Substance: DICLOFENAC SODIUM
  99. DICLOFENAC SODIUM [Suspect]
     Active Substance: DICLOFENAC SODIUM
  100. DICLOFENAC SODIUM [Suspect]
     Active Substance: DICLOFENAC SODIUM
  101. DICLOFENAC SODIUM [Suspect]
     Active Substance: DICLOFENAC SODIUM
  102. DICLOFENAC SODIUM [Suspect]
     Active Substance: DICLOFENAC SODIUM
  103. DICLOFENAC SODIUM [Suspect]
     Active Substance: DICLOFENAC SODIUM
  104. DICLOFENAC SODIUM [Suspect]
     Active Substance: DICLOFENAC SODIUM
  105. DICLOFENAC SODIUM [Suspect]
     Active Substance: DICLOFENAC SODIUM
     Route: 050
  106. DICLOFENAC SODIUM [Suspect]
     Active Substance: DICLOFENAC SODIUM
  107. METHOTREXATE [Suspect]
     Active Substance: METHOTREXATE
     Indication: Rheumatoid arthritis
  108. METHOTREXATE [Suspect]
     Active Substance: METHOTREXATE
  109. METHOTREXATE [Suspect]
     Active Substance: METHOTREXATE
  110. METHOTREXATE [Suspect]
     Active Substance: METHOTREXATE
  111. METHOTREXATE [Suspect]
     Active Substance: METHOTREXATE
     Dosage: 25 MG, QW ORAL
  112. METHOTREXATE [Suspect]
     Active Substance: METHOTREXATE
  113. METHOTREXATE [Suspect]
     Active Substance: METHOTREXATE
  114. METHOTREXATE [Suspect]
     Active Substance: METHOTREXATE
  115. METHOTREXATE [Suspect]
     Active Substance: METHOTREXATE
  116. METHOTREXATE [Suspect]
     Active Substance: METHOTREXATE
  117. METHOTREXATE [Suspect]
     Active Substance: METHOTREXATE
  118. METHOTREXATE [Suspect]
     Active Substance: METHOTREXATE
     Dosage: 25 MG, QW ORAL
  119. METHOTREXATE [Suspect]
     Active Substance: METHOTREXATE
  120. METHOTREXATE [Suspect]
     Active Substance: METHOTREXATE
  121. METHOTREXATE [Suspect]
     Active Substance: METHOTREXATE
     Dosage: 25 MG, QW, INTRAARTERIAL
  122. METHOTREXATE [Suspect]
     Active Substance: METHOTREXATE
     Dosage: 25 MG, QW ORAL
  123. METHOTREXATE [Suspect]
     Active Substance: METHOTREXATE
     Dosage: 15 MG, QW SUBCUTANEOUS
  124. METHOTREXATE [Suspect]
     Active Substance: METHOTREXATE
  125. METHOTREXATE [Suspect]
     Active Substance: METHOTREXATE
     Dosage: 20 MG, QD ORAL
  126. METHOTREXATE [Suspect]
     Active Substance: METHOTREXATE
  127. METHOTREXATE [Suspect]
     Active Substance: METHOTREXATE
     Dosage: 25 MG, QW, INTRAARTERIAL USE PATIENT ROA: ORAL USE
  128. METHOTREXATE [Suspect]
     Active Substance: METHOTREXATE
     Dosage: 25 MG, QW, INTRAARTERIAL USE PATIENT ROA: ORAL USE
  129. METHOTREXATE [Suspect]
     Active Substance: METHOTREXATE
     Dosage: 50 MG, QD ORAL
  130. METHOTREXATE [Suspect]
     Active Substance: METHOTREXATE
  131. METHOTREXATE [Suspect]
     Active Substance: METHOTREXATE
  132. METHOTREXATE [Suspect]
     Active Substance: METHOTREXATE
     Dosage: 25 MG, QD ORAL
  133. METHOTREXATE [Suspect]
     Active Substance: METHOTREXATE
     Dosage: 150 MG, QW SUBCUTANEOUS
  134. METHOTREXATE [Suspect]
     Active Substance: METHOTREXATE
  135. METHOTREXATE [Suspect]
     Active Substance: METHOTREXATE
  136. METHOTREXATE [Suspect]
     Active Substance: METHOTREXATE
  137. METHOTREXATE [Suspect]
     Active Substance: METHOTREXATE
     Dosage: 20 MG, QW ORAL
  138. METHOTREXATE [Suspect]
     Active Substance: METHOTREXATE
  139. METHOTREXATE [Suspect]
     Active Substance: METHOTREXATE
  140. RITUXAN [Suspect]
     Active Substance: RITUXIMAB
     Indication: Rheumatoid arthritis
     Dosage: 365 MG, QD PATIENT ROA: UNKNOWN
  141. RITUXAN [Suspect]
     Active Substance: RITUXIMAB
     Dosage: 2000 MG, QD PATIENT ROA: UNKNOWN
  142. RITUXAN [Suspect]
     Active Substance: RITUXIMAB
  143. RITUXAN [Suspect]
     Active Substance: RITUXIMAB
  144. RITUXAN [Suspect]
     Active Substance: RITUXIMAB
  145. RITUXAN [Suspect]
     Active Substance: RITUXIMAB
  146. RITUXAN [Suspect]
     Active Substance: RITUXIMAB
  147. RITUXAN [Suspect]
     Active Substance: RITUXIMAB
  148. RITUXAN [Suspect]
     Active Substance: RITUXIMAB
  149. RITUXAN [Suspect]
     Active Substance: RITUXIMAB
  150. RITUXAN [Suspect]
     Active Substance: RITUXIMAB
     Dosage: 2000 MG, QD PATIENT ROA: UNKNOWN
  151. RITUXAN [Suspect]
     Active Substance: RITUXIMAB
     Dosage: 2 G, QD, INTRAVENOUS BOLUS
  152. RITUXAN [Suspect]
     Active Substance: RITUXIMAB
  153. RITUXAN [Suspect]
     Active Substance: RITUXIMAB
  154. RITUXAN [Suspect]
     Active Substance: RITUXIMAB
  155. RITUXAN [Suspect]
     Active Substance: RITUXIMAB
  156. RITUXAN [Suspect]
     Active Substance: RITUXIMAB
  157. RITUXAN [Suspect]
     Active Substance: RITUXIMAB
  158. RITUXAN [Suspect]
     Active Substance: RITUXIMAB
  159. RITUXAN [Suspect]
     Active Substance: RITUXIMAB
  160. RITUXAN [Suspect]
     Active Substance: RITUXIMAB
  161. RITUXAN [Suspect]
     Active Substance: RITUXIMAB
     Dosage: 2 G, QD, INTRAVENOUS BOLUS
  162. RITUXAN [Suspect]
     Active Substance: RITUXIMAB
  163. RITUXAN [Suspect]
     Active Substance: RITUXIMAB
     Dosage: UNK UNK, QD, INTRAVENOUS BOLUS
  164. RITUXAN [Suspect]
     Active Substance: RITUXIMAB
  165. RITUXAN [Suspect]
     Active Substance: RITUXIMAB
     Dosage: 2000 MG, QD, INTRAVENOUS BOLUS PATIENT ROA: UNKNOWN
  166. RITUXAN [Suspect]
     Active Substance: RITUXIMAB
  167. RITUXAN [Suspect]
     Active Substance: RITUXIMAB
  168. RITUXAN [Suspect]
     Active Substance: RITUXIMAB
     Dosage: 2000 MG, QD INTRAVENOUS BOLUS
  169. RITUXAN [Suspect]
     Active Substance: RITUXIMAB
  170. RITUXAN [Suspect]
     Active Substance: RITUXIMAB
  171. RITUXAN [Suspect]
     Active Substance: RITUXIMAB
  172. RITUXAN [Suspect]
     Active Substance: RITUXIMAB
  173. RITUXAN [Suspect]
     Active Substance: RITUXIMAB
  174. RITUXAN [Suspect]
     Active Substance: RITUXIMAB
  175. RITUXAN [Suspect]
     Active Substance: RITUXIMAB
  176. NAPROXEN [Concomitant]
     Active Substance: NAPROXEN
     Indication: Product used for unknown indication
  177. NAPROXEN [Concomitant]
     Active Substance: NAPROXEN
     Dosage: 500 MG, QD PATIENT ROA: UNKNOWN
  178. ERELZI [Suspect]
     Active Substance: ETANERCEPT-SZZS
     Indication: Rheumatoid arthritis
  179. ERELZI [Suspect]
     Active Substance: ETANERCEPT-SZZS
     Route: 050
  180. ERELZI [Suspect]
     Active Substance: ETANERCEPT-SZZS
     Route: 050
  181. ERELZI [Suspect]
     Active Substance: ETANERCEPT-SZZS
     Route: 058
  182. ERELZI [Suspect]
     Active Substance: ETANERCEPT-SZZS
  183. ERELZI [Suspect]
     Active Substance: ETANERCEPT-SZZS
     Route: 050
  184. ERELZI [Suspect]
     Active Substance: ETANERCEPT-SZZS
     Route: 050
  185. ERELZI [Suspect]
     Active Substance: ETANERCEPT-SZZS
  186. ERELZI [Suspect]
     Active Substance: ETANERCEPT-SZZS
     Route: 058
  187. ERELZI [Suspect]
     Active Substance: ETANERCEPT-SZZS
  188. ERELZI [Suspect]
     Active Substance: ETANERCEPT-SZZS
  189. ERELZI [Suspect]
     Active Substance: ETANERCEPT-SZZS
  190. ERELZI [Suspect]
     Active Substance: ETANERCEPT-SZZS
  191. ERELZI [Suspect]
     Active Substance: ETANERCEPT-SZZS
  192. CHOLECALCIFEROL [Suspect]
     Active Substance: CHOLECALCIFEROL
     Indication: Product used for unknown indication
  193. CHOLECALCIFEROL [Suspect]
     Active Substance: CHOLECALCIFEROL
  194. CHOLECALCIFEROL [Suspect]
     Active Substance: CHOLECALCIFEROL
  195. ACETAMINOPHEN [Suspect]
     Active Substance: ACETAMINOPHEN
     Indication: Product used for unknown indication
  196. ACETAMINOPHEN [Suspect]
     Active Substance: ACETAMINOPHEN
     Indication: Rheumatoid arthritis
  197. ACETAMINOPHEN [Suspect]
     Active Substance: ACETAMINOPHEN
  198. ACETAMINOPHEN [Suspect]
     Active Substance: ACETAMINOPHEN
  199. ACETAMINOPHEN [Suspect]
     Active Substance: ACETAMINOPHEN
  200. ACETAMINOPHEN [Suspect]
     Active Substance: ACETAMINOPHEN
  201. ACETAMINOPHEN [Suspect]
     Active Substance: ACETAMINOPHEN
  202. ACETAMINOPHEN [Suspect]
     Active Substance: ACETAMINOPHEN
  203. ACETAMINOPHEN [Suspect]
     Active Substance: ACETAMINOPHEN
  204. ACETAMINOPHEN [Suspect]
     Active Substance: ACETAMINOPHEN
  205. ACETAMINOPHEN [Suspect]
     Active Substance: ACETAMINOPHEN
  206. ACETAMINOPHEN [Suspect]
     Active Substance: ACETAMINOPHEN
  207. ACETAMINOPHEN [Suspect]
     Active Substance: ACETAMINOPHEN
  208. ACTEMRA [Suspect]
     Active Substance: TOCILIZUMAB
     Indication: Rheumatoid arthritis
  209. ACTEMRA [Suspect]
     Active Substance: TOCILIZUMAB
  210. ACTEMRA [Suspect]
     Active Substance: TOCILIZUMAB
  211. ACTEMRA [Suspect]
     Active Substance: TOCILIZUMAB
  212. ACTEMRA [Suspect]
     Active Substance: TOCILIZUMAB
  213. ACTEMRA [Suspect]
     Active Substance: TOCILIZUMAB
  214. ACTEMRA [Suspect]
     Active Substance: TOCILIZUMAB
  215. ACTEMRA [Suspect]
     Active Substance: TOCILIZUMAB
  216. ACTEMRA [Suspect]
     Active Substance: TOCILIZUMAB
  217. ACTEMRA [Suspect]
     Active Substance: TOCILIZUMAB
     Dosage: 25 MG, QW SUBCUTANEOUS
  218. ACTEMRA [Suspect]
     Active Substance: TOCILIZUMAB
  219. ACTEMRA [Suspect]
     Active Substance: TOCILIZUMAB
  220. ACTEMRA [Suspect]
     Active Substance: TOCILIZUMAB
  221. ACTEMRA [Suspect]
     Active Substance: TOCILIZUMAB
  222. ACTEMRA [Suspect]
     Active Substance: TOCILIZUMAB
  223. ACTEMRA [Suspect]
     Active Substance: TOCILIZUMAB
  224. ACTEMRA [Suspect]
     Active Substance: TOCILIZUMAB
  225. ACTEMRA [Suspect]
     Active Substance: TOCILIZUMAB
  226. ACTEMRA [Suspect]
     Active Substance: TOCILIZUMAB
  227. ACTEMRA [Suspect]
     Active Substance: TOCILIZUMAB
  228. ACTEMRA [Suspect]
     Active Substance: TOCILIZUMAB
  229. ACTEMRA [Suspect]
     Active Substance: TOCILIZUMAB
  230. ACTEMRA [Suspect]
     Active Substance: TOCILIZUMAB
  231. ACTEMRA [Suspect]
     Active Substance: TOCILIZUMAB
  232. ACTEMRA [Suspect]
     Active Substance: TOCILIZUMAB
  233. ACTEMRA [Suspect]
     Active Substance: TOCILIZUMAB
  234. ALENDRONIC ACID [Suspect]
     Active Substance: ALENDRONIC ACID
     Indication: Rheumatoid arthritis
     Route: 050
  235. ALENDRONIC ACID [Suspect]
     Active Substance: ALENDRONIC ACID
     Route: 048
  236. ALENDRONIC ACID [Suspect]
     Active Substance: ALENDRONIC ACID
     Route: 050
  237. ALENDRONIC ACID [Suspect]
     Active Substance: ALENDRONIC ACID
  238. ALENDRONIC ACID [Suspect]
     Active Substance: ALENDRONIC ACID
     Route: 050
  239. ALENDRONIC ACID [Suspect]
     Active Substance: ALENDRONIC ACID
     Route: 016
  240. ALENDRONIC ACID [Suspect]
     Active Substance: ALENDRONIC ACID
     Route: 050
  241. ALENDRONIC ACID [Suspect]
     Active Substance: ALENDRONIC ACID
  242. ALENDRONIC ACID [Suspect]
     Active Substance: ALENDRONIC ACID
     Route: 048
  243. ALENDRONIC ACID [Suspect]
     Active Substance: ALENDRONIC ACID
  244. ALENDRONIC ACID [Suspect]
     Active Substance: ALENDRONIC ACID
     Route: 048
  245. ALENDRONIC ACID [Suspect]
     Active Substance: ALENDRONIC ACID
  246. ALENDRONIC ACID [Suspect]
     Active Substance: ALENDRONIC ACID
  247. ALENDRONIC ACID [Suspect]
     Active Substance: ALENDRONIC ACID
  248. ALENDRONIC ACID [Suspect]
     Active Substance: ALENDRONIC ACID
  249. ALENDRONIC ACID [Suspect]
     Active Substance: ALENDRONIC ACID
  250. ALENDRONIC ACID [Suspect]
     Active Substance: ALENDRONIC ACID
  251. ALENDRONIC ACID [Suspect]
     Active Substance: ALENDRONIC ACID
  252. ALENDRONIC ACID [Suspect]
     Active Substance: ALENDRONIC ACID
  253. ALENDRONIC ACID [Suspect]
     Active Substance: ALENDRONIC ACID
  254. LEFLUNOMIDE [Suspect]
     Active Substance: LEFLUNOMIDE
     Indication: Rheumatoid arthritis
  255. LEFLUNOMIDE [Suspect]
     Active Substance: LEFLUNOMIDE
  256. LEFLUNOMIDE [Suspect]
     Active Substance: LEFLUNOMIDE
  257. LEFLUNOMIDE [Suspect]
     Active Substance: LEFLUNOMIDE
  258. LEFLUNOMIDE [Suspect]
     Active Substance: LEFLUNOMIDE
  259. LEFLUNOMIDE [Suspect]
     Active Substance: LEFLUNOMIDE
  260. LEFLUNOMIDE [Suspect]
     Active Substance: LEFLUNOMIDE
  261. LEFLUNOMIDE [Suspect]
     Active Substance: LEFLUNOMIDE
  262. LEFLUNOMIDE [Suspect]
     Active Substance: LEFLUNOMIDE
  263. LEFLUNOMIDE [Suspect]
     Active Substance: LEFLUNOMIDE
  264. LEFLUNOMIDE [Suspect]
     Active Substance: LEFLUNOMIDE
  265. LEFLUNOMIDE [Suspect]
     Active Substance: LEFLUNOMIDE
  266. LEFLUNOMIDE [Suspect]
     Active Substance: LEFLUNOMIDE
  267. LEFLUNOMIDE [Suspect]
     Active Substance: LEFLUNOMIDE
  268. PREDNISONE [Suspect]
     Active Substance: PREDNISONE
     Indication: Rheumatoid arthritis
  269. PREDNISONE [Suspect]
     Active Substance: PREDNISONE
  270. PREDNISONE [Suspect]
     Active Substance: PREDNISONE
  271. PREDNISONE [Suspect]
     Active Substance: PREDNISONE
  272. PREDNISONE [Suspect]
     Active Substance: PREDNISONE
     Dosage: 20 MG, QD ORAL
  273. PREDNISONE [Suspect]
     Active Substance: PREDNISONE
  274. PREDNISONE [Suspect]
     Active Substance: PREDNISONE
  275. PREDNISONE [Suspect]
     Active Substance: PREDNISONE
  276. PREDNISONE [Suspect]
     Active Substance: PREDNISONE
  277. PREDNISONE [Suspect]
     Active Substance: PREDNISONE
  278. PREDNISONE [Suspect]
     Active Substance: PREDNISONE
  279. PREDNISONE [Suspect]
     Active Substance: PREDNISONE
  280. PREDNISONE [Suspect]
     Active Substance: PREDNISONE
  281. PREDNISONE [Suspect]
     Active Substance: PREDNISONE
  282. PREDNISONE [Suspect]
     Active Substance: PREDNISONE
  283. PREDNISONE [Suspect]
     Active Substance: PREDNISONE
  284. PREDNISONE [Suspect]
     Active Substance: PREDNISONE
  285. PREDNISONE [Suspect]
     Active Substance: PREDNISONE
  286. APREMILAST [Suspect]
     Active Substance: APREMILAST
     Indication: Rheumatoid arthritis
  287. APREMILAST [Suspect]
     Active Substance: APREMILAST
  288. APREMILAST [Suspect]
     Active Substance: APREMILAST
  289. APREMILAST [Suspect]
     Active Substance: APREMILAST
  290. APREMILAST [Suspect]
     Active Substance: APREMILAST
     Dosage: 6 MG, QD UNKNOWN
  291. APREMILAST [Suspect]
     Active Substance: APREMILAST
  292. APREMILAST [Suspect]
     Active Substance: APREMILAST
  293. ARAVA [Suspect]
     Active Substance: LEFLUNOMIDE
     Indication: Rheumatoid arthritis
  294. ARAVA [Suspect]
     Active Substance: LEFLUNOMIDE
     Route: 048
  295. ARAVA [Suspect]
     Active Substance: LEFLUNOMIDE
     Dosage: 20 MG, QD
     Route: 048
  296. ARAVA [Suspect]
     Active Substance: LEFLUNOMIDE
  297. ARAVA [Suspect]
     Active Substance: LEFLUNOMIDE
  298. ARAVA [Suspect]
     Active Substance: LEFLUNOMIDE
  299. ARAVA [Suspect]
     Active Substance: LEFLUNOMIDE
  300. ARAVA [Suspect]
     Active Substance: LEFLUNOMIDE
     Route: 048
  301. ARAVA [Suspect]
     Active Substance: LEFLUNOMIDE
     Route: 048
  302. ARAVA [Suspect]
     Active Substance: LEFLUNOMIDE
  303. ARAVA [Suspect]
     Active Substance: LEFLUNOMIDE
  304. ARAVA [Suspect]
     Active Substance: LEFLUNOMIDE
  305. ARAVA [Suspect]
     Active Substance: LEFLUNOMIDE
  306. ARAVA [Suspect]
     Active Substance: LEFLUNOMIDE
  307. ARAVA [Suspect]
     Active Substance: LEFLUNOMIDE
  308. ARAVA [Suspect]
     Active Substance: LEFLUNOMIDE
  309. ARAVA [Suspect]
     Active Substance: LEFLUNOMIDE
     Route: 050
  310. ARAVA [Suspect]
     Active Substance: LEFLUNOMIDE
  311. AZATHIOPRINE SODIUM [Suspect]
     Active Substance: AZATHIOPRINE SODIUM
     Indication: Product used for unknown indication
  312. AZATHIOPRINE SODIUM [Suspect]
     Active Substance: AZATHIOPRINE SODIUM
  313. AZATHIOPRINE SODIUM [Suspect]
     Active Substance: AZATHIOPRINE SODIUM
  314. BERINERT [Suspect]
     Active Substance: HUMAN C1-ESTERASE INHIBITOR
     Indication: Product used for unknown indication
  315. BERINERT [Suspect]
     Active Substance: HUMAN C1-ESTERASE INHIBITOR
  316. BERINERT [Suspect]
     Active Substance: HUMAN C1-ESTERASE INHIBITOR
  317. BOTULINUM TOXIN TYPE A [Suspect]
     Active Substance: BOTULINUM TOXIN TYPE A
     Indication: Product used for unknown indication
  318. BOTULINUM TOXIN TYPE A [Suspect]
     Active Substance: BOTULINUM TOXIN TYPE A
  319. BOTULINUM TOXIN TYPE A [Suspect]
     Active Substance: BOTULINUM TOXIN TYPE A
  320. BUTRANS [Suspect]
     Active Substance: BUPRENORPHINE
     Indication: Product used for unknown indication
  321. BUTRANS [Suspect]
     Active Substance: BUPRENORPHINE
  322. BUTRANS [Suspect]
     Active Substance: BUPRENORPHINE
  323. CELEBREX [Suspect]
     Active Substance: CELECOXIB
     Indication: Product used for unknown indication
     Dosage: 1 DOSAGE FORM, QD PATIENT ROA: UNKNOWN
  324. CELEBREX [Suspect]
     Active Substance: CELECOXIB
     Dosage: 2 DOSAGE FORM, QD ORAL
  325. CERTOLIZUMAB PEGOL [Suspect]
     Active Substance: CERTOLIZUMAB PEGOL
     Indication: Product used for unknown indication
  326. CERTOLIZUMAB PEGOL [Suspect]
     Active Substance: CERTOLIZUMAB PEGOL
  327. CERTOLIZUMAB PEGOL [Suspect]
     Active Substance: CERTOLIZUMAB PEGOL
  328. CERTOLIZUMAB PEGOL [Suspect]
     Active Substance: CERTOLIZUMAB PEGOL
  329. CERTOLIZUMAB PEGOL [Suspect]
     Active Substance: CERTOLIZUMAB PEGOL
  330. CERTOLIZUMAB PEGOL [Suspect]
     Active Substance: CERTOLIZUMAB PEGOL
  331. CERTOLIZUMAB PEGOL [Suspect]
     Active Substance: CERTOLIZUMAB PEGOL
  332. CERTOLIZUMAB PEGOL [Suspect]
     Active Substance: CERTOLIZUMAB PEGOL
  333. CERTOLIZUMAB PEGOL [Suspect]
     Active Substance: CERTOLIZUMAB PEGOL
  334. CERTOLIZUMAB PEGOL [Suspect]
     Active Substance: CERTOLIZUMAB PEGOL
  335. CERTOLIZUMAB PEGOL [Suspect]
     Active Substance: CERTOLIZUMAB PEGOL
  336. CERTOLIZUMAB PEGOL [Suspect]
     Active Substance: CERTOLIZUMAB PEGOL
  337. CERTOLIZUMAB PEGOL [Suspect]
     Active Substance: CERTOLIZUMAB PEGOL
  338. CERTOLIZUMAB PEGOL [Suspect]
     Active Substance: CERTOLIZUMAB PEGOL
  339. DESOXIMETASONE [Suspect]
     Active Substance: DESOXIMETASONE
     Indication: Rheumatoid arthritis
  340. DESOXIMETASONE [Suspect]
     Active Substance: DESOXIMETASONE
  341. DESOXIMETASONE [Suspect]
     Active Substance: DESOXIMETASONE
  342. DESOXIMETASONE [Suspect]
     Active Substance: DESOXIMETASONE
  343. DESOXIMETASONE [Suspect]
     Active Substance: DESOXIMETASONE
  344. DESOXIMETASONE [Suspect]
     Active Substance: DESOXIMETASONE
  345. DESOXIMETASONE [Suspect]
     Active Substance: DESOXIMETASONE
  346. DESOXIMETASONE [Suspect]
     Active Substance: DESOXIMETASONE
  347. DESOXIMETASONE [Suspect]
     Active Substance: DESOXIMETASONE
  348. DESOXIMETASONE [Suspect]
     Active Substance: DESOXIMETASONE
  349. DESOXIMETASONE [Suspect]
     Active Substance: DESOXIMETASONE
  350. DESOXIMETASONE [Suspect]
     Active Substance: DESOXIMETASONE
  351. DESOXIMETASONE [Suspect]
     Active Substance: DESOXIMETASONE
  352. DESOXIMETASONE [Suspect]
     Active Substance: DESOXIMETASONE
  353. DESOXIMETASONE [Suspect]
     Active Substance: DESOXIMETASONE
  354. DESOXIMETASONE [Suspect]
     Active Substance: DESOXIMETASONE
  355. DESOXIMETASONE [Suspect]
     Active Substance: DESOXIMETASONE
  356. DESOXIMETASONE [Suspect]
     Active Substance: DESOXIMETASONE
  357. DESOXIMETASONE [Suspect]
     Active Substance: DESOXIMETASONE
  358. DESOXIMETASONE [Suspect]
     Active Substance: DESOXIMETASONE
  359. DESOXIMETASONE [Suspect]
     Active Substance: DESOXIMETASONE
  360. DESOXIMETASONE [Suspect]
     Active Substance: DESOXIMETASONE
  361. DESOXIMETASONE [Suspect]
     Active Substance: DESOXIMETASONE
  362. DOMPERIDONE MALEATE [Suspect]
     Active Substance: DOMPERIDONE MALEATE
     Indication: Product used for unknown indication
  363. DOMPERIDONE MALEATE [Suspect]
     Active Substance: DOMPERIDONE MALEATE
  364. DOMPERIDONE MALEATE [Suspect]
     Active Substance: DOMPERIDONE MALEATE
  365. ENBREL [Suspect]
     Active Substance: ETANERCEPT
     Indication: Rheumatoid arthritis
     Dosage: 10 MG, QW PATIENT ROA: UNKNOWN
  366. ENBREL [Suspect]
     Active Substance: ETANERCEPT
  367. ENBREL [Suspect]
     Active Substance: ETANERCEPT
  368. ENBREL [Suspect]
     Active Substance: ETANERCEPT
  369. ENBREL [Suspect]
     Active Substance: ETANERCEPT
  370. ENBREL [Suspect]
     Active Substance: ETANERCEPT
  371. ENBREL [Suspect]
     Active Substance: ETANERCEPT
  372. ENBREL [Suspect]
     Active Substance: ETANERCEPT
  373. ENBREL [Suspect]
     Active Substance: ETANERCEPT
  374. ENBREL [Suspect]
     Active Substance: ETANERCEPT
  375. ENBREL [Suspect]
     Active Substance: ETANERCEPT
  376. ENBREL [Suspect]
     Active Substance: ETANERCEPT
  377. ENBREL [Suspect]
     Active Substance: ETANERCEPT
  378. ENBREL [Suspect]
     Active Substance: ETANERCEPT
  379. ENBREL [Suspect]
     Active Substance: ETANERCEPT
  380. ENBREL [Suspect]
     Active Substance: ETANERCEPT
  381. ENBREL [Suspect]
     Active Substance: ETANERCEPT
  382. ENBREL [Suspect]
     Active Substance: ETANERCEPT
  383. ENBREL [Suspect]
     Active Substance: ETANERCEPT
  384. ENBREL [Suspect]
     Active Substance: ETANERCEPT
  385. ENBREL [Suspect]
     Active Substance: ETANERCEPT
  386. ENBREL [Suspect]
     Active Substance: ETANERCEPT
     Dosage: 50 MG, QW SUBCUTANEOUS
  387. ENBREL [Suspect]
     Active Substance: ETANERCEPT
  388. ENBREL [Suspect]
     Active Substance: ETANERCEPT
  389. ENBREL [Suspect]
     Active Substance: ETANERCEPT
  390. ENBREL [Suspect]
     Active Substance: ETANERCEPT
  391. ENBREL [Suspect]
     Active Substance: ETANERCEPT
  392. ENBREL [Suspect]
     Active Substance: ETANERCEPT
  393. ENBREL [Suspect]
     Active Substance: ETANERCEPT
  394. ENBREL [Suspect]
     Active Substance: ETANERCEPT
  395. ENBREL [Suspect]
     Active Substance: ETANERCEPT
  396. ENBREL [Suspect]
     Active Substance: ETANERCEPT
  397. ENBREL [Suspect]
     Active Substance: ETANERCEPT
  398. FLUMETHASONE [Suspect]
     Active Substance: FLUMETHASONE
     Indication: Product used for unknown indication
  399. FLUMETHASONE [Suspect]
     Active Substance: FLUMETHASONE
  400. FLUMETHASONE [Suspect]
     Active Substance: FLUMETHASONE
  401. FLUMETHASONE [Suspect]
     Active Substance: FLUMETHASONE
  402. FLUMETHASONE [Suspect]
     Active Substance: FLUMETHASONE
  403. FLUMETHASONE [Suspect]
     Active Substance: FLUMETHASONE
  404. FLUMETHASONE PIVALATE [Suspect]
     Active Substance: FLUMETHASONE PIVALATE
     Indication: Product used for unknown indication
  405. FLUMETHASONE PIVALATE [Suspect]
     Active Substance: FLUMETHASONE PIVALATE
  406. FLUMETHASONE PIVALATE [Suspect]
     Active Substance: FLUMETHASONE PIVALATE
  407. FLUMETHASONE PIVALATE [Suspect]
     Active Substance: FLUMETHASONE PIVALATE
  408. FLUMETHASONE PIVALATE [Suspect]
     Active Substance: FLUMETHASONE PIVALATE
  409. FLUMETHASONE PIVALATE [Suspect]
     Active Substance: FLUMETHASONE PIVALATE
  410. FLUMETHASONE PIVALATE [Suspect]
     Active Substance: FLUMETHASONE PIVALATE
  411. FOLIC ACID [Suspect]
     Active Substance: FOLIC ACID
     Indication: Rheumatoid arthritis
     Route: 048
  412. FOLIC ACID [Suspect]
     Active Substance: FOLIC ACID
  413. FOLIC ACID [Suspect]
     Active Substance: FOLIC ACID
  414. FOLIC ACID [Suspect]
     Active Substance: FOLIC ACID
     Route: 048
  415. FOLIC ACID [Suspect]
     Active Substance: FOLIC ACID
     Route: 048
  416. FOLIC ACID [Suspect]
     Active Substance: FOLIC ACID
  417. FOLIC ACID [Suspect]
     Active Substance: FOLIC ACID
  418. FOLIC ACID [Suspect]
     Active Substance: FOLIC ACID
     Route: 048
  419. FOLIC ACID [Suspect]
     Active Substance: FOLIC ACID
     Route: 058
  420. FOLIC ACID [Suspect]
     Active Substance: FOLIC ACID
  421. FOLIC ACID [Suspect]
     Active Substance: FOLIC ACID
  422. FOLIC ACID [Suspect]
     Active Substance: FOLIC ACID
  423. FOLIC ACID [Suspect]
     Active Substance: FOLIC ACID
  424. FOLIC ACID [Suspect]
     Active Substance: FOLIC ACID
  425. FOLIC ACID [Suspect]
     Active Substance: FOLIC ACID
  426. FOSAMAX [Suspect]
     Active Substance: ALENDRONATE SODIUM
     Indication: Rheumatoid arthritis
     Route: 050
  427. FOSAMAX [Suspect]
     Active Substance: ALENDRONATE SODIUM
     Route: 048
  428. FOSAMAX [Suspect]
     Active Substance: ALENDRONATE SODIUM
     Route: 050
  429. FOSAMAX [Suspect]
     Active Substance: ALENDRONATE SODIUM
  430. FOSAMAX [Suspect]
     Active Substance: ALENDRONATE SODIUM
     Route: 050
  431. FOSAMAX [Suspect]
     Active Substance: ALENDRONATE SODIUM
     Route: 058
  432. FOSAMAX [Suspect]
     Active Substance: ALENDRONATE SODIUM
  433. FOSAMAX [Suspect]
     Active Substance: ALENDRONATE SODIUM
     Route: 016
  434. FOSAMAX [Suspect]
     Active Substance: ALENDRONATE SODIUM
  435. FOSAMAX [Suspect]
     Active Substance: ALENDRONATE SODIUM
  436. FOSAMAX [Suspect]
     Active Substance: ALENDRONATE SODIUM
  437. FOSAMAX [Suspect]
     Active Substance: ALENDRONATE SODIUM
  438. FOSAMAX [Suspect]
     Active Substance: ALENDRONATE SODIUM
  439. CETIRIZINE HYDROCHLORIDE [Suspect]
     Active Substance: CETIRIZINE HYDROCHLORIDE
     Indication: Rheumatoid arthritis
  440. CETIRIZINE HYDROCHLORIDE [Suspect]
     Active Substance: CETIRIZINE HYDROCHLORIDE
  441. CETIRIZINE HYDROCHLORIDE [Suspect]
     Active Substance: CETIRIZINE HYDROCHLORIDE
  442. CETIRIZINE HYDROCHLORIDE [Suspect]
     Active Substance: CETIRIZINE HYDROCHLORIDE
     Route: 050
  443. CETIRIZINE HYDROCHLORIDE [Suspect]
     Active Substance: CETIRIZINE HYDROCHLORIDE
  444. CETIRIZINE HYDROCHLORIDE [Suspect]
     Active Substance: CETIRIZINE HYDROCHLORIDE
     Route: 016
  445. CETIRIZINE HYDROCHLORIDE [Suspect]
     Active Substance: CETIRIZINE HYDROCHLORIDE
  446. CETIRIZINE HYDROCHLORIDE [Suspect]
     Active Substance: CETIRIZINE HYDROCHLORIDE
  447. CETIRIZINE HYDROCHLORIDE [Suspect]
     Active Substance: CETIRIZINE HYDROCHLORIDE
  448. CETIRIZINE HYDROCHLORIDE [Suspect]
     Active Substance: CETIRIZINE HYDROCHLORIDE
  449. CETIRIZINE HYDROCHLORIDE [Suspect]
     Active Substance: CETIRIZINE HYDROCHLORIDE
  450. CETIRIZINE HYDROCHLORIDE [Suspect]
     Active Substance: CETIRIZINE HYDROCHLORIDE
  451. CETIRIZINE HYDROCHLORIDE [Suspect]
     Active Substance: CETIRIZINE HYDROCHLORIDE
  452. CETIRIZINE HYDROCHLORIDE [Suspect]
     Active Substance: CETIRIZINE HYDROCHLORIDE
  453. CETIRIZINE HYDROCHLORIDE [Suspect]
     Active Substance: CETIRIZINE HYDROCHLORIDE
  454. CETIRIZINE HYDROCHLORIDE [Suspect]
     Active Substance: CETIRIZINE HYDROCHLORIDE
  455. CETIRIZINE HYDROCHLORIDE [Suspect]
     Active Substance: CETIRIZINE HYDROCHLORIDE
  456. CETIRIZINE HYDROCHLORIDE [Suspect]
     Active Substance: CETIRIZINE HYDROCHLORIDE
  457. CETIRIZINE HYDROCHLORIDE [Suspect]
     Active Substance: CETIRIZINE HYDROCHLORIDE
  458. CETIRIZINE HYDROCHLORIDE [Suspect]
     Active Substance: CETIRIZINE HYDROCHLORIDE
  459. CETIRIZINE HYDROCHLORIDE [Suspect]
     Active Substance: CETIRIZINE HYDROCHLORIDE
  460. CETIRIZINE HYDROCHLORIDE [Suspect]
     Active Substance: CETIRIZINE HYDROCHLORIDE
  461. CETIRIZINE HYDROCHLORIDE [Suspect]
     Active Substance: CETIRIZINE HYDROCHLORIDE
     Route: 048
  462. CETIRIZINE HYDROCHLORIDE [Suspect]
     Active Substance: CETIRIZINE HYDROCHLORIDE
  463. CETIRIZINE HYDROCHLORIDE [Suspect]
     Active Substance: CETIRIZINE HYDROCHLORIDE
  464. CETIRIZINE HYDROCHLORIDE [Suspect]
     Active Substance: CETIRIZINE HYDROCHLORIDE
  465. CETIRIZINE HYDROCHLORIDE [Suspect]
     Active Substance: CETIRIZINE HYDROCHLORIDE
  466. CETIRIZINE HYDROCHLORIDE [Suspect]
     Active Substance: CETIRIZINE HYDROCHLORIDE
     Route: 050
  467. CETIRIZINE HYDROCHLORIDE [Suspect]
     Active Substance: CETIRIZINE HYDROCHLORIDE
  468. CETIRIZINE HYDROCHLORIDE [Suspect]
     Active Substance: CETIRIZINE HYDROCHLORIDE
  469. CETIRIZINE HYDROCHLORIDE [Suspect]
     Active Substance: CETIRIZINE HYDROCHLORIDE
     Route: 050
  470. CETIRIZINE HYDROCHLORIDE [Suspect]
     Active Substance: CETIRIZINE HYDROCHLORIDE
  471. CIMZIA [Suspect]
     Active Substance: CERTOLIZUMAB PEGOL
     Indication: Rheumatoid arthritis
     Route: 050
  472. CIMZIA [Suspect]
     Active Substance: CERTOLIZUMAB PEGOL
     Indication: Psoriasis
     Route: 058
  473. CIMZIA [Suspect]
     Active Substance: CERTOLIZUMAB PEGOL
  474. CIMZIA [Suspect]
     Active Substance: CERTOLIZUMAB PEGOL
  475. CIMZIA [Suspect]
     Active Substance: CERTOLIZUMAB PEGOL
  476. CIMZIA [Suspect]
     Active Substance: CERTOLIZUMAB PEGOL
     Route: 058
  477. CIMZIA [Suspect]
     Active Substance: CERTOLIZUMAB PEGOL
  478. CIMZIA [Suspect]
     Active Substance: CERTOLIZUMAB PEGOL
  479. CIMZIA [Suspect]
     Active Substance: CERTOLIZUMAB PEGOL
  480. CIMZIA [Suspect]
     Active Substance: CERTOLIZUMAB PEGOL
  481. CIMZIA [Suspect]
     Active Substance: CERTOLIZUMAB PEGOL
     Route: 050
  482. CIMZIA [Suspect]
     Active Substance: CERTOLIZUMAB PEGOL
  483. CIMZIA [Suspect]
     Active Substance: CERTOLIZUMAB PEGOL
  484. CIMZIA [Suspect]
     Active Substance: CERTOLIZUMAB PEGOL
     Route: 058
  485. CIMZIA [Suspect]
     Active Substance: CERTOLIZUMAB PEGOL
  486. CIMZIA [Suspect]
     Active Substance: CERTOLIZUMAB PEGOL
     Route: 058
  487. CIMZIA [Suspect]
     Active Substance: CERTOLIZUMAB PEGOL
     Route: 058
  488. CIMZIA [Suspect]
     Active Substance: CERTOLIZUMAB PEGOL
  489. CIMZIA [Suspect]
     Active Substance: CERTOLIZUMAB PEGOL
  490. CIMZIA [Suspect]
     Active Substance: CERTOLIZUMAB PEGOL
  491. CIMZIA [Suspect]
     Active Substance: CERTOLIZUMAB PEGOL
  492. SULFASALAZINE [Suspect]
     Active Substance: SULFASALAZINE
     Indication: Rheumatoid arthritis
  493. SULFASALAZINE [Suspect]
     Active Substance: SULFASALAZINE
  494. SULFASALAZINE [Suspect]
     Active Substance: SULFASALAZINE
  495. SIMPONI [Suspect]
     Active Substance: GOLIMUMAB
     Indication: Rheumatoid arthritis
  496. SIMPONI [Suspect]
     Active Substance: GOLIMUMAB
  497. SIMPONI [Suspect]
     Active Substance: GOLIMUMAB
  498. SIMPONI [Suspect]
     Active Substance: GOLIMUMAB
  499. SIMPONI [Suspect]
     Active Substance: GOLIMUMAB
  500. SIMPONI [Suspect]
     Active Substance: GOLIMUMAB
  501. SIMPONI [Suspect]
     Active Substance: GOLIMUMAB
  502. SIMPONI [Suspect]
     Active Substance: GOLIMUMAB
  503. SIMPONI [Suspect]
     Active Substance: GOLIMUMAB
  504. SIMPONI [Suspect]
     Active Substance: GOLIMUMAB
  505. SIMPONI [Suspect]
     Active Substance: GOLIMUMAB
  506. SIMPONI [Suspect]
     Active Substance: GOLIMUMAB
  507. SIMPONI [Suspect]
     Active Substance: GOLIMUMAB
  508. SIRUKUMAB [Suspect]
     Active Substance: SIRUKUMAB
     Indication: Product used for unknown indication
  509. SIRUKUMAB [Suspect]
     Active Substance: SIRUKUMAB
  510. SIRUKUMAB [Suspect]
     Active Substance: SIRUKUMAB
  511. SIRUKUMAB [Suspect]
     Active Substance: SIRUKUMAB
  512. SIRUKUMAB [Suspect]
     Active Substance: SIRUKUMAB
  513. GOLD SODIUM THIOMALATE [Suspect]
     Active Substance: GOLD SODIUM THIOMALATE
     Indication: Product used for unknown indication
  514. GOLD SODIUM THIOMALATE [Suspect]
     Active Substance: GOLD SODIUM THIOMALATE
  515. GOLD SODIUM THIOMALATE [Suspect]
     Active Substance: GOLD SODIUM THIOMALATE
  516. GOLD SODIUM THIOMALATE [Suspect]
     Active Substance: GOLD SODIUM THIOMALATE
  517. GOLD SODIUM THIOMALATE [Suspect]
     Active Substance: GOLD SODIUM THIOMALATE
  518. GOLD SODIUM THIOMALATE [Suspect]
     Active Substance: GOLD SODIUM THIOMALATE
  519. GOLD SODIUM THIOMALATE [Suspect]
     Active Substance: GOLD SODIUM THIOMALATE
  520. GOLD SODIUM THIOMALATE [Suspect]
     Active Substance: GOLD SODIUM THIOMALATE
  521. GOLD SODIUM THIOMALATE [Suspect]
     Active Substance: GOLD SODIUM THIOMALATE
  522. SULFASALAZINE [Suspect]
     Active Substance: SULFASALAZINE
     Indication: Rheumatoid arthritis
  523. SULFASALAZINE [Suspect]
     Active Substance: SULFASALAZINE
  524. SULFASALAZINE [Suspect]
     Active Substance: SULFASALAZINE
     Dosage: 2 DOSAGE FORM, QD ORAL
  525. SULFASALAZINE [Suspect]
     Active Substance: SULFASALAZINE
     Dosage: 1000 MG, QD ORAL
  526. SULFASALAZINE [Suspect]
     Active Substance: SULFASALAZINE
     Dosage: 2000 MG, QD ORAL
  527. SULFASALAZINE [Suspect]
     Active Substance: SULFASALAZINE
  528. SULFASALAZINE [Suspect]
     Active Substance: SULFASALAZINE
  529. SULFASALAZINE [Suspect]
     Active Substance: SULFASALAZINE
     Dosage: 2 G, QD UNKNOWN
  530. SULFASALAZINE [Suspect]
     Active Substance: SULFASALAZINE
  531. SULFASALAZINE [Suspect]
     Active Substance: SULFASALAZINE
  532. SULFASALAZINE [Suspect]
     Active Substance: SULFASALAZINE
  533. SULFASALAZINE [Suspect]
     Active Substance: SULFASALAZINE
  534. SULFASALAZINE [Suspect]
     Active Substance: SULFASALAZINE
  535. SULFASALAZINE [Suspect]
     Active Substance: SULFASALAZINE
     Dosage: 4 MG, QD SUBCUTANEOUS
  536. SULFASALAZINE [Suspect]
     Active Substance: SULFASALAZINE
  537. SULFASALAZINE [Suspect]
     Active Substance: SULFASALAZINE
  538. SULFASALAZINE [Suspect]
     Active Substance: SULFASALAZINE
  539. SULFASALAZINE [Suspect]
     Active Substance: SULFASALAZINE
  540. SULFASALAZINE [Suspect]
     Active Substance: SULFASALAZINE
  541. SULFASALAZINE [Suspect]
     Active Substance: SULFASALAZINE
  542. SULFASALAZINE [Suspect]
     Active Substance: SULFASALAZINE
  543. SULFASALAZINE [Suspect]
     Active Substance: SULFASALAZINE
     Dosage: 2 G, QD SUBCUTANEOUS
  544. SULFASALAZINE [Suspect]
     Active Substance: SULFASALAZINE
     Dosage: 2 DOSAGE FORM, QD ORAL
  545. SULFASALAZINE [Suspect]
     Active Substance: SULFASALAZINE
  546. SULFASALAZINE [Suspect]
     Active Substance: SULFASALAZINE
     Dosage: 300 MG, QD UNKNOWN
  547. SULFASALAZINE [Suspect]
     Active Substance: SULFASALAZINE
  548. SULFASALAZINE [Suspect]
     Active Substance: SULFASALAZINE
  549. SULFASALAZINE [Suspect]
     Active Substance: SULFASALAZINE
  550. SULFASALAZINE [Suspect]
     Active Substance: SULFASALAZINE
  551. SULFASALAZINE [Suspect]
     Active Substance: SULFASALAZINE
  552. SULFASALAZINE [Suspect]
     Active Substance: SULFASALAZINE
  553. SULFASALAZINE [Suspect]
     Active Substance: SULFASALAZINE
  554. SULFASALAZINE [Suspect]
     Active Substance: SULFASALAZINE
  555. SULFASALAZINE [Suspect]
     Active Substance: SULFASALAZINE
  556. SULFASALAZINE [Suspect]
     Active Substance: SULFASALAZINE
  557. SULFASALAZINE [Suspect]
     Active Substance: SULFASALAZINE
  558. SULFASALAZINE [Suspect]
     Active Substance: SULFASALAZINE
  559. SULFASALAZINE [Suspect]
     Active Substance: SULFASALAZINE
  560. SULFASALAZINE [Suspect]
     Active Substance: SULFASALAZINE
  561. SULFASALAZINE [Suspect]
     Active Substance: SULFASALAZINE
  562. SULFASALAZINE [Suspect]
     Active Substance: SULFASALAZINE
  563. SULFASALAZINE [Suspect]
     Active Substance: SULFASALAZINE
  564. CHLORHEXIDINE GLUCONATE [Suspect]
     Active Substance: CHLORHEXIDINE GLUCONATE
     Indication: Product used for unknown indication
  565. CHLORHEXIDINE GLUCONATE [Suspect]
     Active Substance: CHLORHEXIDINE GLUCONATE
  566. CHLORHEXIDINE GLUCONATE [Suspect]
     Active Substance: CHLORHEXIDINE GLUCONATE
  567. CHLORHEXIDINE GLUCONATE [Suspect]
     Active Substance: CHLORHEXIDINE GLUCONATE
  568. CHLORHEXIDINE GLUCONATE [Suspect]
     Active Substance: CHLORHEXIDINE GLUCONATE
  569. CHLORHEXIDINE GLUCONATE [Suspect]
     Active Substance: CHLORHEXIDINE GLUCONATE
  570. CHLORHEXIDINE GLUCONATE [Suspect]
     Active Substance: CHLORHEXIDINE GLUCONATE
  571. VITAMIN D3 [Suspect]
     Active Substance: CHOLECALCIFEROL
     Indication: Product used for unknown indication
  572. VITAMIN D3 [Suspect]
     Active Substance: CHOLECALCIFEROL
  573. PHENYLEPHRINE HYDROCHLORIDE [Suspect]
     Active Substance: PHENYLEPHRINE HYDROCHLORIDE
     Indication: Rheumatoid arthritis
  574. RITUXIMAB [Suspect]
     Active Substance: RITUXIMAB
     Indication: Rheumatoid arthritis
     Dosage: 2000 MG, QD PATIENT ROA: UNKNOWN
  575. RITUXIMAB [Suspect]
     Active Substance: RITUXIMAB
     Dosage: 2000 MG, QD PATIENT ROA: UNKNOWN
  576. RITUXIMAB [Suspect]
     Active Substance: RITUXIMAB
  577. RITUXIMAB [Suspect]
     Active Substance: RITUXIMAB
  578. RITUXIMAB [Suspect]
     Active Substance: RITUXIMAB
  579. RITUXIMAB [Suspect]
     Active Substance: RITUXIMAB
  580. RITUXIMAB [Suspect]
     Active Substance: RITUXIMAB
     Dosage: 2000 MG, QD PATIENT ROA: UNKNOWN
  581. RITUXIMAB [Suspect]
     Active Substance: RITUXIMAB
  582. RITUXIMAB [Suspect]
     Active Substance: RITUXIMAB
  583. RITUXIMAB [Suspect]
     Active Substance: RITUXIMAB
  584. RITUXIMAB [Suspect]
     Active Substance: RITUXIMAB
  585. RITUXIMAB [Suspect]
     Active Substance: RITUXIMAB
  586. RITUXIMAB [Suspect]
     Active Substance: RITUXIMAB
  587. RITUXIMAB [Suspect]
     Active Substance: RITUXIMAB
     Dosage: 2 G, QD (2 G, QD INTRAVENOUS BOLUS) PATIENT ROA: INTRAVENOUS BOLUS
  588. RITUXIMAB [Suspect]
     Active Substance: RITUXIMAB
  589. RITUXIMAB [Suspect]
     Active Substance: RITUXIMAB
  590. RITUXIMAB [Suspect]
     Active Substance: RITUXIMAB
  591. RITUXIMAB [Suspect]
     Active Substance: RITUXIMAB
  592. RITUXIMAB [Suspect]
     Active Substance: RITUXIMAB
  593. RITUXIMAB [Suspect]
     Active Substance: RITUXIMAB
     Dosage: 2 G, QD (2 G, QD INTRAVENOUS BOLUS) PATIENT ROA: INTRAVENOUS BOLUS
  594. RITUXIMAB [Suspect]
     Active Substance: RITUXIMAB
     Dosage: 2000 MG, QD PATIENT ROA: UNKNOWN
  595. RITUXIMAB [Suspect]
     Active Substance: RITUXIMAB
  596. RITUXIMAB [Suspect]
     Active Substance: RITUXIMAB
  597. RITUXIMAB [Suspect]
     Active Substance: RITUXIMAB
  598. RITUXIMAB [Suspect]
     Active Substance: RITUXIMAB
     Dosage: 2000 MG, QD PATIENT ROA: UNKNOWN
  599. RITUXIMAB [Suspect]
     Active Substance: RITUXIMAB
     Dosage: 365 MG, QD PATIENT ROA: UNKNOWN
  600. RITUXIMAB [Suspect]
     Active Substance: RITUXIMAB
  601. RITUXIMAB [Suspect]
     Active Substance: RITUXIMAB
  602. RITUXIMAB [Suspect]
     Active Substance: RITUXIMAB
  603. RITUXIMAB [Suspect]
     Active Substance: RITUXIMAB
  604. RITUXIMAB [Suspect]
     Active Substance: RITUXIMAB
  605. RITUXIMAB [Suspect]
     Active Substance: RITUXIMAB
  606. RITUXIMAB [Suspect]
     Active Substance: RITUXIMAB
  607. RITUXIMAB [Suspect]
     Active Substance: RITUXIMAB
  608. RITUXIMAB [Suspect]
     Active Substance: RITUXIMAB
  609. RITUXIMAB [Suspect]
     Active Substance: RITUXIMAB
  610. RITUXIMAB [Suspect]
     Active Substance: RITUXIMAB
  611. HYRIMOZ [Suspect]
     Active Substance: ADALIMUMAB-ADAZ
     Indication: Rheumatoid arthritis
  612. HYRIMOZ [Suspect]
     Active Substance: ADALIMUMAB-ADAZ
     Indication: Product used for unknown indication
  613. HYRIMOZ [Suspect]
     Active Substance: ADALIMUMAB-ADAZ
  614. HYRIMOZ [Suspect]
     Active Substance: ADALIMUMAB-ADAZ
  615. HYRIMOZ [Suspect]
     Active Substance: ADALIMUMAB-ADAZ
  616. AZATHIOPRINE [Suspect]
     Active Substance: AZATHIOPRINE
     Indication: Product used for unknown indication
  617. ACETAMINOPHEN [Suspect]
     Active Substance: ACETAMINOPHEN
     Indication: Product used for unknown indication
  618. ACETAMINOPHEN [Suspect]
     Active Substance: ACETAMINOPHEN
  619. ACETAMINOPHEN [Suspect]
     Active Substance: ACETAMINOPHEN

REACTIONS (35)
  - Hepatitis [Fatal]
  - Inflammation [Fatal]
  - Mobility decreased [Fatal]
  - Gastrointestinal disorder [Fatal]
  - Nail disorder [Fatal]
  - Pneumonia [Fatal]
  - Finger deformity [Fatal]
  - Off label use [Fatal]
  - Condition aggravated [Fatal]
  - Product label confusion [Fatal]
  - Headache [Fatal]
  - Bursitis [Fatal]
  - Wheezing [Fatal]
  - Weight increased [Fatal]
  - Folliculitis [Fatal]
  - Grip strength decreased [Fatal]
  - Injury [Fatal]
  - Neck pain [Fatal]
  - Musculoskeletal stiffness [Fatal]
  - Abdominal distension [Fatal]
  - Adverse reaction [Fatal]
  - Gait inability [Fatal]
  - Intentional product use issue [Fatal]
  - Insomnia [Fatal]
  - Pain in extremity [Fatal]
  - Back injury [Fatal]
  - Dyspepsia [Fatal]
  - Wound infection [Fatal]
  - Liver function test increased [Fatal]
  - Malaise [Fatal]
  - Fall [Fatal]
  - Hypoaesthesia [Fatal]
  - Muscular weakness [Fatal]
  - Coeliac disease [Fatal]
  - Gastrooesophageal reflux disease [Fatal]
